FAERS Safety Report 10070902 (Version 1)
Quarter: 2014Q2

REPORT INFORMATION
  Report Type: Spontaneous
  Country: US (occurrence: US)
  Receive Date: 20140410
  Receipt Date: 20140410
  Transmission Date: 20141212
  Serious: Yes (Death, Hospitalization)
  Sender: FDA-Public Use
  Company Number: PHHY2014US040915

PATIENT
  Age: 58 Year
  Sex: Male

DRUGS (20)
  1. SUXAMETHONIUM CHLORIDE [Suspect]
     Indication: ANAESTHESIA
     Dosage: 0.6 MG/KG, UNK
     Route: 042
  2. ETOMIDATE [Concomitant]
     Indication: ANAESTHESIA
     Dosage: 0.4 MG/KG, UNK
     Route: 042
  3. MIDAZOLAM [Concomitant]
     Indication: ANAESTHESIA
     Dosage: 5 MG, UNK
     Route: 042
  4. FENTANYL [Concomitant]
     Indication: ANAESTHESIA
     Dosage: 100 UG, UNK
     Route: 042
  5. ISOFLURANE [Concomitant]
     Indication: ANAESTHESIA
     Route: 055
  6. ASPIRIN [Concomitant]
     Dosage: 325 MG, UNK
  7. BENAZEPRIL [Concomitant]
     Dosage: 40 MG, UNK
  8. DIGOXIN [Concomitant]
     Dosage: 0.125 MG, UNK
  9. OMEPRAZOLE [Concomitant]
     Dosage: 20 MG, UNK
  10. SIMVASTATIN [Concomitant]
     Dosage: 40 MG, UNK
  11. TIOTROPIUM [Concomitant]
     Dosage: 18 UG DAILY
  12. CARVEDILOL [Concomitant]
     Dosage: 12.5 MG, UNK
  13. FUROSEMIDE [Concomitant]
     Dosage: 40 MG, UNK
  14. GLIPIZIDE [Concomitant]
     Dosage: 10 MG, UNK
  15. METFORMIN [Concomitant]
     Dosage: 1000 MG, UNK
  16. NIACIN [Concomitant]
     Dosage: 1000 MG, BID
  17. OXYCODONE AND ACETAMINOPHEN [Concomitant]
  18. ALBUTEROL [Concomitant]
     Dosage: 2.5 MG, UNK
  19. LORAZEPAM [Concomitant]
     Dosage: 2 MG, UNK
  20. INSULIN HUMAN [Concomitant]

REACTIONS (12)
  - Death [Fatal]
  - Hyperkalaemia [Unknown]
  - Electrocardiogram abnormal [Unknown]
  - Ventricular fibrillation [Unknown]
  - Cardiac arrest [Unknown]
  - Rhabdomyolysis [Unknown]
  - Chromaturia [Unknown]
  - Pyrexia [Unknown]
  - Renal failure acute [Unknown]
  - Hypotension [Unknown]
  - Urine output decreased [Unknown]
  - Agitation [Unknown]
